FAERS Safety Report 13038970 (Version 1)
Quarter: 2016Q4

REPORT INFORMATION
  Report Type: Spontaneous
  Country: US (occurrence: US)
  Receive Date: 20161216
  Receipt Date: 20161216
  Transmission Date: 20170207
  Serious: Yes (Hospitalization)
  Sender: FDA-Public Use
  Company Number: None

PATIENT
  Age: 63 Year
  Sex: Male

DRUGS (19)
  1. OMEPRAZOLE. [Concomitant]
     Active Substance: OMEPRAZOLE
  2. VITAMIN D3 [Concomitant]
     Active Substance: CHOLECALCIFEROL
  3. LEVOCETITIZI [Concomitant]
  4. VOTRIENT [Suspect]
     Active Substance: PAZOPANIB HYDROCHLORIDE
     Indication: RENAL CANCER
     Route: 048
     Dates: start: 20160217
  5. PROMETHAZINE [Concomitant]
     Active Substance: PROMETHAZINE\PROMETHAZINE HYDROCHLORIDE
  6. COQ10 [Concomitant]
     Active Substance: UBIDECARENONE
  7. MADNESIUM [Concomitant]
  8. HYDRMORPHON [Concomitant]
  9. PROCHLORPER [Concomitant]
  10. DOC-Q-LAC [Concomitant]
  11. BENICAR [Concomitant]
     Active Substance: OLMESARTAN MEDOXOMIL
  12. CLONAZEPAM. [Concomitant]
     Active Substance: CLONAZEPAM
  13. MULTI-VITAMIN [Concomitant]
     Active Substance: .ALPHA.-TOCOPHEROL ACETATE, DL-\ASCORBIC ACID\CYANOCOBALAMIN\FLUORIDE ION\FOLIC ACID\NIACIN\PYRIDOXINE\RIBOFLAVIN\THIAMINE\VITAMIN A\VITAMIN D
  14. VITAMIN B12 [Concomitant]
     Active Substance: CYANOCOBALAMIN
  15. GABAPENTIN. [Concomitant]
     Active Substance: GABAPENTIN
  16. FLUOXETINE [Concomitant]
     Active Substance: FLUOXETINE HYDROCHLORIDE
  17. L-CARNITINE [Concomitant]
     Active Substance: LEVOCARNITINE
  18. B6 NATURAL [Concomitant]
  19. DIPHEN/ATROP [Concomitant]
     Active Substance: ATROPINE SULFATE\DIPHENOXYLATE

REACTIONS (1)
  - Nausea [None]

NARRATIVE: CASE EVENT DATE: 20161106
